FAERS Safety Report 7073871-0 (Version None)
Quarter: 2010Q4

REPORT INFORMATION
  Report Type: 
  Country: None (occurrence: None)
  Receive Date: 20101029
  Receipt Date: 20100923
  Transmission Date: 20110411
  Serious: No
  Sender: FDA-Public Use
  Company Number: A0878406A

PATIENT
  Age: 78 Year
  Sex: Female

DRUGS (3)
  1. FLU VACCINE [Suspect]
     Indication: PROPHYLAXIS
     Route: 065
     Dates: start: 20100830, end: 20100830
  2. ADVAIR DISKUS 100/50 [Suspect]
     Indication: PRODUCT USED FOR UNKNOWN INDICATION
     Dosage: 1PUFF TWICE PER DAY
     Route: 055
     Dates: start: 20100820, end: 20100827
  3. NO CONCURRENT MEDICATION [Concomitant]

REACTIONS (1)
  - BLOOD PRESSURE INCREASED [None]
